FAERS Safety Report 9379230 (Version 2)
Quarter: 2013Q3

REPORT INFORMATION
  Report Type: Spontaneous
  Country: US (occurrence: None)
  Receive Date: 20130626
  Receipt Date: 20130718
  Transmission Date: 20140515
  Serious: Yes (Other)
  Sender: FDA-Public Use
  Company Number: JPI-P-033093

PATIENT
  Age: 56 Year
  Sex: Male

DRUGS (2)
  1. XYREM (500 MILLIGRAM/MILLILITERS, SOLUTION) (SODIUM OXYBATE) [Suspect]
     Indication: HYPERSOMNIA
     Dosage: 4.5 GM (2.25 MG,2 IN 1 D)
     Route: 048
     Dates: start: 20100521
  2. XYREM (500 MILLIGRAM/MILLILITERS, SOLUTION) (SODIUM OXYBATE) [Suspect]
     Indication: MIDDLE INSOMNIA
     Dosage: 4.5 GM (2.25 MG,2 IN 1 D)
     Route: 048
     Dates: start: 20100521

REACTIONS (2)
  - Fall [None]
  - Hip fracture [None]
